FAERS Safety Report 25097474 (Version 1)
Quarter: 2025Q1

REPORT INFORMATION
  Report Type: Report from Study
  Country: US (occurrence: US)
  Receive Date: 20250320
  Receipt Date: 20250320
  Transmission Date: 20250409
  Serious: Yes (Hospitalization)
  Sender: ABBVIE
  Company Number: US-ABBVIE-6178686

PATIENT
  Sex: Male

DRUGS (1)
  1. HUMIRA [Suspect]
     Active Substance: ADALIMUMAB
     Indication: Product used for unknown indication
     Route: 058
     Dates: start: 2019

REACTIONS (5)
  - Pneumothorax [Recovering/Resolving]
  - Arthritis [Unknown]
  - Pneumonia [Recovering/Resolving]
  - Haemothorax [Recovering/Resolving]
  - Arterial rupture [Recovering/Resolving]
